FAERS Safety Report 18185508 (Version 1)
Quarter: 2020Q3

REPORT INFORMATION
  Report Type: Spontaneous
  Country: US (occurrence: US)
  Receive Date: 20200821
  Receipt Date: 20200821
  Transmission Date: 20201103
  Serious: No
  Sender: FDA-Public Use
  Company Number: None

PATIENT
  Age: 35 Year
  Sex: Female
  Weight: 76.5 kg

DRUGS (1)
  1. XIIDRA [Suspect]
     Active Substance: LIFITEGRAST
     Indication: DRY EYE
     Dosage: ?          QUANTITY:1 DROP(S);?
     Route: 047
     Dates: start: 20200820, end: 20200820

REACTIONS (6)
  - Palpitations [None]
  - Discomfort [None]
  - Eye irritation [None]
  - Vision blurred [None]
  - Abdominal discomfort [None]
  - Taste disorder [None]

NARRATIVE: CASE EVENT DATE: 20200820
